FAERS Safety Report 25950463 (Version 4)
Quarter: 2025Q4

REPORT INFORMATION
  Report Type: Report from Study
  Country: CO (occurrence: CO)
  Receive Date: 20251023
  Receipt Date: 20251212
  Transmission Date: 20260119
  Serious: Yes (Hospitalization, Other)
  Sender: ABBVIE
  Company Number: CO-JNJFOC-20251001141

PATIENT
  Age: 75 Year
  Sex: Male
  Weight: 76 kg

DRUGS (1)
  1. IMBRUVICA [Suspect]
     Active Substance: IBRUTINIB
     Indication: Mantle cell lymphoma
     Route: 048
     Dates: start: 20240830

REACTIONS (10)
  - Lymphadenopathy [Unknown]
  - Lung disorder [Not Recovered/Not Resolved]
  - Product availability issue [Unknown]
  - Mouth haemorrhage [Unknown]
  - Nasopharyngitis [Unknown]
  - Swelling [Unknown]
  - Obstructive airways disorder [Unknown]
  - Treatment noncompliance [Unknown]
  - Choking [Unknown]
  - Weight decreased [Unknown]

NARRATIVE: CASE EVENT DATE: 20251006
